FAERS Safety Report 4990001-7 (Version None)
Quarter: 2006Q2

REPORT INFORMATION
  Report Type: 
  Country: None (occurrence: None)
  Receive Date: 20060503
  Receipt Date: 20060421
  Transmission Date: 20061013
  Serious: Yes (Other)
  Sender: FDA-Public Use
  Company Number: ID-JNJFOC-20060405640

PATIENT
  Age: 38 Year
  Sex: Female

DRUGS (3)
  1. RISPERDAL CONSTA [Suspect]
     Route: 030
  2. RISPERDAL CONSTA [Suspect]
     Indication: SCHIZOPHRENIA
     Route: 030
  3. OLANZAPINE [Concomitant]
     Indication: SCHIZOPHRENIA
     Dosage: ONCE EVERY NIGHT

REACTIONS (1)
  - AGGRESSION [None]
